FAERS Safety Report 8484644-6 (Version None)
Quarter: 2012Q3

REPORT INFORMATION
  Report Type: 
  Country: None (occurrence: None)
  Receive Date: 20120703
  Receipt Date: 20120622
  Transmission Date: 20120928
  Serious: Yes (Death, Hospitalization, Disabling, Other)
  Sender: FDA-Public Use
  Company Number: JP-BRISTOL-MYERS SQUIBB COMPANY-16671463

PATIENT
  Age: 40 Year
  Sex: Male
  Weight: 112 kg

DRUGS (11)
  1. LITHIUM CARBONATE [Concomitant]
     Dates: start: 20070511, end: 20090723
  2. LEVOTOMIN [Concomitant]
     Dosage: TAB
     Dates: start: 20090610, end: 20090623
  3. HALOPERIDOL [Concomitant]
     Dosage: TAB
     Dates: start: 20070511, end: 20090723
  4. ALLOPURINOL [Concomitant]
     Dosage: TABS
     Dates: start: 20070511, end: 20090723
  5. RISPERIDONE [Concomitant]
     Dosage: TAB
     Dates: start: 20090715, end: 20090721
  6. LORELCO [Suspect]
     Indication: HYPERLIPIDAEMIA
     Dosage: TAB
     Route: 048
     Dates: start: 20080403, end: 20090723
  7. TASMOLIN [Concomitant]
     Dosage: TAB
     Dates: start: 20070511, end: 20090723
  8. ABILIFY [Suspect]
     Indication: SCHIZOPHRENIA
     Dosage: 18MG/DAY
     Route: 048
     Dates: start: 20090624, end: 20090721
  9. ZOLOFT [Concomitant]
     Dosage: TAB
     Dates: start: 20080925, end: 20090723
  10. SEROQUEL [Concomitant]
     Dosage: TABS
     Dates: start: 20070311, end: 20090723
  11. MAGNESIUM OXIDE [Concomitant]
     Dates: start: 20070814, end: 20090723

REACTIONS (6)
  - SUICIDE ATTEMPT [None]
  - AGITATION [None]
  - RHABDOMYOLYSIS [None]
  - AGGRESSION [None]
  - DELIRIUM [None]
  - RESTLESSNESS [None]
